APPROVED DRUG PRODUCT: SYNTHROID
Active Ingredient: LEVOTHYROXINE SODIUM
Strength: 0.15MG **See current Annual Edition, 1.8 Description of Special Situations, Levothyroxine Sodium
Dosage Form/Route: TABLET;ORAL
Application: N021402 | Product #009 | TE Code: AB1,AB2
Applicant: ABBVIE INC
Approved: Jul 24, 2002 | RLD: Yes | RS: No | Type: RX